FAERS Safety Report 7540592-7 (Version None)
Quarter: 2011Q2

REPORT INFORMATION
  Report Type: 
  Country: None (occurrence: None)
  Receive Date: 20110610
  Receipt Date: 20110607
  Transmission Date: 20111010
  Serious: Yes (Other)
  Sender: FDA-Public Use
  Company Number: US-PFIZER INC-2011040992

PATIENT
  Sex: Female
  Weight: 90.703 kg

DRUGS (3)
  1. AVALIDE [Concomitant]
     Indication: HYPERTENSION
     Dosage: 150/12.5MG, 1X/DAY
  2. CHANTIX [Suspect]
     Dosage: UNK
  3. CHANTIX [Suspect]
     Indication: SMOKING CESSATION THERAPY
     Dosage: 0.5 MG, 1X/DAY
     Dates: start: 20100101, end: 20101201

REACTIONS (2)
  - TONGUE ULCERATION [None]
  - NEOPLASM MALIGNANT [None]
